FAERS Safety Report 25841140 (Version 1)
Quarter: 2025Q3

REPORT INFORMATION
  Report Type: Spontaneous
  Country: US (occurrence: None)
  Receive Date: 20250923
  Receipt Date: 20250923
  Transmission Date: 20251021
  Serious: Yes (unspecified)
  Sender: FDA-CTU
  Company Number: None

PATIENT
  Age: 61 Year
  Sex: Female
  Weight: 53.145 kg

DRUGS (1)
  1. KISQALI [Suspect]
     Active Substance: RIBOCICLIB SUCCINATE
     Dosage: FREQUENCY : DAILY;?
     Route: 048

REACTIONS (5)
  - Therapy interrupted [None]
  - Pruritus [None]
  - Skin discolouration [None]
  - Rash [None]
  - Skin exfoliation [None]

NARRATIVE: CASE EVENT DATE: 20250923
